FAERS Safety Report 16947771 (Version 1)
Quarter: 2019Q4

REPORT INFORMATION
  Report Type: Spontaneous
  Country: US (occurrence: US)
  Receive Date: 20191022
  Receipt Date: 20191022
  Transmission Date: 20200122
  Serious: No
  Sender: FDA-Public Use
  Company Number: US-BRACCO-2019US04055

PATIENT
  Sex: Female

DRUGS (1)
  1. E-Z-PAQUE [Suspect]
     Active Substance: BARIUM SULFATE
     Indication: X-RAY GASTROINTESTINAL TRACT
     Dosage: 50 ML, SINGLE
     Route: 048
     Dates: start: 20190807, end: 20190807

REACTIONS (3)
  - Product packaging quantity issue [Unknown]
  - Therapeutic product effect decreased [Unknown]
  - No adverse event [Unknown]

NARRATIVE: CASE EVENT DATE: 20190807
